FAERS Safety Report 5995272-6 (Version None)
Quarter: 2008Q4

REPORT INFORMATION
  Report Type: 
  Country: None (occurrence: None)
  Receive Date: 20081212
  Receipt Date: 20080924
  Transmission Date: 20090506
  Serious: No
  Sender: FDA-Public Use
  Company Number: US-ABBOTT-08P-163-0478272-00

PATIENT
  Sex: Female
  Weight: 27.694 kg

DRUGS (15)
  1. HUMIRA [Suspect]
     Indication: JUVENILE ARTHRITIS
     Route: 058
     Dates: start: 20080701, end: 20080918
  2. HUMIRA [Suspect]
     Route: 058
     Dates: start: 20080918
  3. METHOTREXATE [Concomitant]
     Indication: JUVENILE ARTHRITIS
     Route: 048
     Dates: start: 20080901
  4. CELECOXIB [Concomitant]
     Indication: JUVENILE ARTHRITIS
     Route: 048
     Dates: start: 20060101
  5. FOLIC ACID [Concomitant]
     Indication: DRUG USE FOR UNKNOWN INDICATION
     Route: 048
     Dates: start: 20080901
  6. RANITIDINE [Concomitant]
     Indication: DRUG USE FOR UNKNOWN INDICATION
     Route: 048
     Dates: start: 20080701
  7. LORATADINE [Concomitant]
     Indication: HYPERSENSITIVITY
     Route: 048
     Dates: start: 20080301
  8. FLUTICASONE PROPIONATE [Concomitant]
     Indication: ASTHMA
     Route: 055
     Dates: start: 20060101
  9. ALBUTEROL SULFATE [Concomitant]
     Indication: ASTHMA
     Route: 055
     Dates: start: 20030101
  10. MOMETASONE FUROATE [Concomitant]
     Indication: HYPERSENSITIVITY
     Route: 045
     Dates: start: 20050101
  11. CLONIDINE HCL [Concomitant]
     Indication: INSOMNIA
     Route: 048
     Dates: start: 20080401
  12. PREDNISOLONE ACETATE [Concomitant]
     Indication: IRITIS
     Route: 047
     Dates: start: 20020101
  13. GALENIC /DORZOLAMIDE/TIMOLOL/ [Concomitant]
     Indication: IRITIS
     Route: 047
     Dates: start: 20050101
  14. SODIUM CHLORIDE 0.9% [Concomitant]
     Indication: NASAL DRYNESS
     Route: 045
     Dates: start: 20060101
  15. MONTELUKAST SODIUM [Concomitant]
     Indication: HYPERSENSITIVITY
     Route: 048
     Dates: start: 20000101, end: 20080301

REACTIONS (1)
  - EYE INFLAMMATION [None]
